FAERS Safety Report 8129328-9 (Version None)
Quarter: 2012Q1

REPORT INFORMATION
  Report Type: 
  Country: None (occurrence: None)
  Receive Date: 20120210
  Receipt Date: 20120203
  Transmission Date: 20120608
  Serious: Yes (Hospitalization)
  Sender: FDA-Public Use
  Company Number: PHHY2012FR010660

PATIENT
  Sex: Female

DRUGS (6)
  1. PACLITAXEL [Suspect]
     Indication: NON-SMALL CELL LUNG CANCER
     Dosage: UNK
     Route: 042
     Dates: start: 20111005
  2. CARBOPLATIN [Suspect]
     Indication: NON-SMALL CELL LUNG CANCER
     Dosage: UNK
     Route: 042
     Dates: start: 20111005
  3. CARBOPLATIN [Suspect]
     Dosage: UNK
     Dates: start: 20111116
  4. PACLITAXEL [Suspect]
     Dosage: UNK
     Route: 042
     Dates: start: 20111116
  5. PACLITAXEL [Suspect]
     Dosage: 150 MG, UNK
     Route: 042
     Dates: start: 20111123
  6. PACLITAXEL [Suspect]
     Dosage: 150 MG, UNK
     Route: 042
     Dates: start: 20111102

REACTIONS (2)
  - CHEST PAIN [None]
  - DIARRHOEA [None]
